FAERS Safety Report 9303922 (Version 2)
Quarter: 2013Q2

REPORT INFORMATION
  Report Type: Spontaneous
  Country: US (occurrence: US)
  Receive Date: 20130522
  Receipt Date: 20130528
  Transmission Date: 20140414
  Serious: No
  Sender: FDA-Public Use
  Company Number: US-009507513-1305USA006207

PATIENT
  Age: 19 Year
  Sex: Female
  Weight: 67.12 kg

DRUGS (2)
  1. NEXPLANON [Suspect]
     Indication: CONTRACEPTION
     Dosage: 1 ROD UP TO 3 YEARS, LEFT ARM IMPLANT
     Route: 058
     Dates: start: 2012
  2. ALBUTEROL [Concomitant]

REACTIONS (3)
  - Menorrhagia [Unknown]
  - Back pain [Unknown]
  - Headache [Unknown]
